FAERS Safety Report 16051381 (Version 5)
Quarter: 2019Q2

REPORT INFORMATION
  Report Type: Spontaneous
  Country: US (occurrence: US)
  Receive Date: 20190308
  Receipt Date: 20190405
  Transmission Date: 20190711
  Serious: Yes (Life-Threatening, Hospitalization, Other)
  Sender: FDA-Public Use
  Company Number: US-TESAROUBC-2019-TSO01119-US

PATIENT
  Age: 51 Year
  Sex: Female
  Weight: 74.2 kg

DRUGS (18)
  1. PRILOSEC [Concomitant]
     Active Substance: OMEPRAZOLE MAGNESIUM
     Indication: PRODUCT USED FOR UNKNOWN INDICATION
     Dosage: 40 MG, QD
     Route: 048
     Dates: start: 20181129
  2. DOXORUBICIN [Suspect]
     Active Substance: DOXORUBICIN
     Indication: CHEMOTHERAPY
     Dosage: 75 MG/M2, UNK (CONTINUOUS INFUSION OVER 72 HOURS)
  3. VARUBI [Suspect]
     Active Substance: ROLAPITANT
     Indication: NAUSEA
     Dosage: 180 MG, QD
     Route: 048
     Dates: start: 20190226, end: 20190226
  4. PREMARIN [Concomitant]
     Active Substance: ESTROGENS, CONJUGATED
     Indication: PRODUCT USED FOR UNKNOWN INDICATION
     Dosage: 1.25 MG, QD
     Route: 048
     Dates: start: 20181129
  5. MSIR [Concomitant]
     Active Substance: MORPHINE SULFATE
     Indication: PAIN
     Dosage: 15 MG, EVERY 4 HOURS PRN
     Route: 048
     Dates: start: 20190222
  6. VINCRISTINE [Suspect]
     Active Substance: VINCRISTINE
     Indication: CHEMOTHERAPY
     Dosage: 2 MG, UNK
  7. IFOSFAMIDE. [Suspect]
     Active Substance: IFOSFAMIDE
     Indication: CHEMOTHERAPY
     Dosage: 10 UNK, UNK (G/M2) GIVEN IN DIVIDED DOSES OVER 4 DAYS
  8. FLONASE                            /00908302/ [Concomitant]
     Active Substance: MOMETASONE FUROATE
     Indication: PRODUCT USED FOR UNKNOWN INDICATION
     Dosage: 50 MCG, PRN
     Route: 045
     Dates: start: 20180213
  9. PHENERGAN [Concomitant]
     Active Substance: PROMETHAZINE HYDROCHLORIDE
     Indication: NAUSEA
     Dosage: 25 MG, EVERY 6 HOURS PRN
     Dates: start: 20190222
  10. SODIUM BICARBONATE W/SODIUM CHLORIDE [Concomitant]
     Active Substance: SODIUM BICARBONATE\SODIUM CHLORIDE
     Dosage: 10 ML, SPIT AVERY 4 HOURS WHILE AWAKE, PRN
     Dates: start: 20190222
  11. NEURONTIN [Concomitant]
     Active Substance: GABAPENTIN
     Indication: PRODUCT USED FOR UNKNOWN INDICATION
     Dosage: 300 MG, TID
     Route: 048
     Dates: start: 20190208
  12. XANAX [Concomitant]
     Active Substance: ALPRAZOLAM
     Indication: INSOMNIA
     Dosage: 0.5 MG, PRN
     Route: 048
     Dates: start: 20180827
  13. PHENERGAN [Concomitant]
     Active Substance: PROMETHAZINE HYDROCHLORIDE
     Indication: VOMITING
  14. CARAFATE [Concomitant]
     Active Substance: SUCRALFATE
     Indication: PRODUCT USED FOR UNKNOWN INDICATION
     Dosage: 1000 MG, Q4H
     Dates: start: 20181018
  15. VARUBI [Suspect]
     Active Substance: ROLAPITANT
     Indication: VOMITING
     Dosage: 180 MG, SINGLE
     Route: 048
     Dates: start: 20190319, end: 20190319
  16. ZOVIRAX [Concomitant]
     Active Substance: ACYCLOVIR
     Indication: PRODUCT USED FOR UNKNOWN INDICATION
     Dosage: 800 MG, QD
     Route: 048
     Dates: start: 20181129
  17. SENOKOT-S [Concomitant]
     Active Substance: DOCUSATE SODIUM\SENNOSIDES
     Indication: FUNCTIONAL GASTROINTESTINAL DISORDER
     Dosage: 2 TABLETS 8.6MG-50MG, MAY ADJUST DOSE, BID
     Route: 048
     Dates: start: 20190222
  18. SODIUM CHLORIDE. [Concomitant]
     Active Substance: SODIUM CHLORIDE
     Indication: CATHETER MANAGEMENT
     Dosage: 10 ML, QD TO FLUSH THE CATHETER
     Dates: start: 20190222

REACTIONS (37)
  - Mucosal inflammation [Unknown]
  - Dyspnoea [Unknown]
  - Rhinorrhoea [Unknown]
  - Oral pain [Unknown]
  - C-reactive protein increased [Unknown]
  - Fibrin D dimer increased [Unknown]
  - Activated partial thromboplastin time prolonged [Recovered/Resolved]
  - N-terminal prohormone brain natriuretic peptide increased [Recovered/Resolved]
  - Pain [Unknown]
  - Blood sodium decreased [Recovered/Resolved]
  - Neutropenia [Unknown]
  - Oropharyngeal pain [Unknown]
  - Chest pain [Recovered/Resolved]
  - Gingival pain [Unknown]
  - White blood cell count decreased [Not Recovered/Not Resolved]
  - Febrile neutropenia [Unknown]
  - Blood lactic acid decreased [Unknown]
  - Blood creatinine decreased [Unknown]
  - Pneumonia [Unknown]
  - Blood phosphorus decreased [Not Recovered/Not Resolved]
  - Thrombocytopenia [Unknown]
  - Syncope [Recovered/Resolved]
  - Dyspnoea [Recovered/Resolved]
  - Chills [Unknown]
  - Disease progression [Not Recovered/Not Resolved]
  - Anaemia [Not Recovered/Not Resolved]
  - Pharyngeal swelling [Unknown]
  - Swelling [Unknown]
  - Urine analysis abnormal [Unknown]
  - Procalcitonin increased [Unknown]
  - Carbon dioxide decreased [Unknown]
  - Blood lactic acid decreased [Unknown]
  - Dizziness [Unknown]
  - Haemoglobin decreased [Not Recovered/Not Resolved]
  - Pyrexia [Unknown]
  - Blood potassium decreased [Unknown]
  - Troponin T increased [Recovered/Resolved]

NARRATIVE: CASE EVENT DATE: 20190227
